FAERS Safety Report 24638328 (Version 1)
Quarter: 2024Q4

REPORT INFORMATION
  Report Type: Report from Study
  Country: US (occurrence: US)
  Receive Date: 20241119
  Receipt Date: 20241119
  Transmission Date: 20250114
  Serious: Yes (Hospitalization)
  Sender: ABBVIE
  Company Number: US-ABBVIE-6005830

PATIENT
  Age: 45 Year
  Sex: Male

DRUGS (1)
  1. HUMIRA [Suspect]
     Active Substance: ADALIMUMAB
     Indication: Product used for unknown indication
     Route: 058
     Dates: start: 20230515, end: 20231115

REACTIONS (3)
  - Musculoskeletal disorder [Unknown]
  - Multiple sclerosis [Unknown]
  - Axial spondyloarthritis [Unknown]

NARRATIVE: CASE EVENT DATE: 20241105
